FAERS Safety Report 6722819-4 (Version None)
Quarter: 2010Q2

REPORT INFORMATION
  Report Type: 
  Country: None (occurrence: None)
  Receive Date: 20100512
  Receipt Date: 20100512
  Transmission Date: 20101027
  Serious: Yes (Hospitalization)
  Sender: FDA-Public Use
  Company Number: None

PATIENT
  Sex: Male
  Weight: 87.6 kg

DRUGS (2)
  1. METHOTREXATE [Suspect]
     Dosage: 528 MG
  2. VINCRISTINE SULFATE [Suspect]
     Dosage: 4 MG

REACTIONS (8)
  - DEHYDRATION [None]
  - FATIGUE [None]
  - FEBRILE NEUTROPENIA [None]
  - MUCOSAL ATROPHY [None]
  - MUCOSAL INFLAMMATION [None]
  - OROPHARYNGEAL PAIN [None]
  - TONGUE DISORDER [None]
  - WHITE BLOOD CELL COUNT DECREASED [None]
